FAERS Safety Report 18618889 (Version 1)
Quarter: 2020Q4

REPORT INFORMATION
  Report Type: Spontaneous
  Country: US (occurrence: US)
  Receive Date: 20201215
  Receipt Date: 20201215
  Transmission Date: 20210114
  Serious: No
  Sender: FDA-Public Use
  Company Number: US-SUPERNUS PHARMACEUTICALS, INC.-2020SUP00105

PATIENT
  Age: 17 Year
  Sex: Female

DRUGS (1)
  1. OXTELLAR XR [Suspect]
     Active Substance: OXCARBAZEPINE
     Indication: PARTIAL SEIZURES
     Dosage: 1200 MG, 1X/DAY
     Dates: start: 20200507

REACTIONS (3)
  - Dyspepsia [Unknown]
  - Abdominal pain upper [Unknown]
  - Gastric disorder [Unknown]

NARRATIVE: CASE EVENT DATE: 202005
